FAERS Safety Report 12056642 (Version 3)
Quarter: 2017Q2

REPORT INFORMATION
  Report Type: Spontaneous
  Country: DK (occurrence: DK)
  Receive Date: 20160210
  Receipt Date: 20170406
  Transmission Date: 20170829
  Serious: Yes (Death, Life-Threatening)
  Sender: FDA-Public Use
  Company Number: DK-ROCHE-1708690

PATIENT
  Age: 57 Year
  Sex: Male
  Weight: 58 kg

DRUGS (11)
  1. GABAPENTIN. [Concomitant]
     Active Substance: GABAPENTIN
     Indication: NEURALGIA
     Dosage: DOSIS: 300-900 MG PR DAG.
     Route: 048
     Dates: start: 20150424, end: 20150814
  2. AZATHIOPRIN [Concomitant]
     Active Substance: AZATHIOPRINE
     Indication: VASCULITIS
     Dosage: DOSIS: 75-150 MG PR. DAG
     Route: 048
     Dates: start: 20100907, end: 20160205
  3. MABTHERA [Suspect]
     Active Substance: RITUXIMAB
     Indication: RENAL VASCULITIS
     Dosage: TOTAL OF 2 G GIVEN AS 2 DOSAGES OF 1 G
     Route: 042
     Dates: start: 20150731
  4. IMUREL [Concomitant]
     Active Substance: AZATHIOPRINE SODIUM
     Indication: RENAL VASCULITIS
     Route: 065
     Dates: start: 20100907, end: 20160126
  5. BENZYLPENICILLIN [Concomitant]
     Active Substance: PENICILLIN G
     Indication: INFECTION
     Route: 042
     Dates: start: 20160104, end: 20160107
  6. METADON [Concomitant]
     Active Substance: METHADONE HYDROCHLORIDE
     Indication: DRUG USE DISORDER
     Route: 048
     Dates: start: 20100525, end: 20160207
  7. PREDNISOLON [Concomitant]
     Active Substance: PREDNISOLONE
     Indication: RENAL VASCULITIS
     Route: 065
     Dates: start: 20100603, end: 20150909
  8. SULFAMETHOXAZOLE/TRIMETHOPRIM [Concomitant]
     Active Substance: SULFAMETHOXAZOLE\TRIMETHOPRIM
     Indication: INFECTION PROPHYLAXIS
     Route: 065
     Dates: start: 20150731, end: 20151216
  9. PANTOPRAZOLE [Concomitant]
     Active Substance: PANTOPRAZOLE
     Indication: PRODUCT USED FOR UNKNOWN INDICATION
     Dosage: DOSIS: 20-40 MG PER DAG.
     Route: 048
     Dates: start: 20100125, end: 20160204
  10. CETIRIZINE [Concomitant]
     Active Substance: CETIRIZINE HYDROCHLORIDE
     Indication: ALLERGY PROPHYLAXIS
     Dosage: DOSIS: 2 DOSER AF 10 MG.
     Route: 048
     Dates: start: 20150731, end: 20150819
  11. PARACETAMOL [Concomitant]
     Active Substance: ACETAMINOPHEN
     Indication: PAIN
     Dosage: DOSIS: 0-1 G OM DAG.
     Route: 048
     Dates: start: 20100528, end: 20160107

REACTIONS (2)
  - Neuroendocrine carcinoma [Fatal]
  - Lymphadenopathy [Unknown]

NARRATIVE: CASE EVENT DATE: 201509
